FAERS Safety Report 6088620-2 (Version None)
Quarter: 2009Q1

REPORT INFORMATION
  Report Type: 
  Country: None (occurrence: None)
  Receive Date: 20090224
  Receipt Date: 20090213
  Transmission Date: 20090719
  Serious: Yes (Other)
  Sender: FDA-Public Use
  Company Number: US-WYE-H08198409

PATIENT
  Age: 55 Year
  Sex: Male
  Weight: 106 kg

DRUGS (8)
  1. TORISEL [Suspect]
     Indication: RENAL CELL CARCINOMA
     Route: 042
     Dates: start: 20080715, end: 20080917
  2. METOPROLOL [Concomitant]
     Dosage: NOT PROVIDED
     Route: 065
  3. PROCHLORPERAZINE [Concomitant]
     Dosage: NOT PROVIDED
     Route: 065
  4. GEMFIBROZIL [Concomitant]
     Dosage: NOT PROVIDED
     Route: 065
  5. FERROUS SULFATE TAB [Concomitant]
     Dosage: NOT PROVIDED
     Route: 065
  6. MULTI-VITAMINS [Concomitant]
     Dosage: NOT PROVIDED
     Route: 065
  7. LISINOPRIL [Suspect]
     Indication: HYPERTENSION
     Route: 048
  8. HYDROCHLOROTHIAZIDE [Concomitant]
     Dosage: NOT PROVIDED
     Route: 065

REACTIONS (4)
  - ANGIOEDEMA [None]
  - OROPHARYNGEAL PAIN [None]
  - PARAESTHESIA [None]
  - THROAT TIGHTNESS [None]
